FAERS Safety Report 22134170 (Version 2)
Quarter: 2023Q1

REPORT INFORMATION
  Report Type: Report from Study
  Country: US (occurrence: None)
  Receive Date: 20230324
  Receipt Date: 20230329
  Transmission Date: 20230417
  Serious: Yes (Hospitalization)
  Sender: FDA-Public Use
  Company Number: US-ROCHE-3314577

PATIENT
  Age: 74 Year
  Sex: Female
  Weight: 61.1 kg

DRUGS (2)
  1. ATEZOLIZUMAB [Suspect]
     Active Substance: ATEZOLIZUMAB
     Indication: Pancreatic carcinoma metastatic
     Dosage: ON 06/MAR/2023 AT 11:18 AM, SHE RECEIVED MOST RECENT DOSE OF ATEZOLIZUMAB (840 MG)PRIOR TO AE/SAE.
     Route: 041
     Dates: start: 20230306
  2. RLY-1971 [Suspect]
     Active Substance: RLY-1971
     Indication: Pancreatic carcinoma metastatic
     Dosage: ON 13/MAR/2023 AT 10:25 AM, SHE RECEIVED MOST RECENT DOSE OF GDC-1971 (60 MG)PRIOR TO AE/SAE.
     Route: 048
     Dates: start: 20230306

REACTIONS (1)
  - Febrile neutropenia [Recovering/Resolving]

NARRATIVE: CASE EVENT DATE: 20230318
